FAERS Safety Report 16725109 (Version 1)
Quarter: 2019Q4

REPORT INFORMATION
  Report Type: Spontaneous
  Country: US (occurrence: US)
  Receive Date: 20190820
  Receipt Date: 20190820
  Transmission Date: 20200122
  Serious: Yes (Hospitalization, Disabling)
  Sender: FDA-Public Use
  Company Number: None

PATIENT
  Age: 57 Year
  Sex: Female
  Weight: 86.4 kg

DRUGS (9)
  1. LEVOFLOXACIN. [Suspect]
     Active Substance: LEVOFLOXACIN
     Indication: SINUSITIS
     Dosage: ?          QUANTITY:1 TABLET(S);?
     Route: 048
     Dates: start: 20190622, end: 20190626
  2. VIT B 1 [Concomitant]
  3. LEXIPRO [Concomitant]
  4. VITAMIN D2 [Concomitant]
     Active Substance: ERGOCALCIFEROL
  5. TYLENOL [Concomitant]
     Active Substance: ACETAMINOPHEN
  6. ACYCLOVIR. [Concomitant]
     Active Substance: ACYCLOVIR
  7. METHYLTREXATE [Concomitant]
  8. MERCAPTOPURINE. [Concomitant]
     Active Substance: MERCAPTOPURINE
  9. CALCIUM [Concomitant]
     Active Substance: CALCIUM

REACTIONS (5)
  - Insomnia [None]
  - Anxiety [None]
  - Psychotic disorder [None]
  - Hallucination [None]
  - Rash [None]

NARRATIVE: CASE EVENT DATE: 20190626
